FAERS Safety Report 4761409-X (Version None)
Quarter: 2005Q3

REPORT INFORMATION
  Report Type: 
  Country: None (occurrence: None)
  Receive Date: 20050901
  Receipt Date: 20050825
  Transmission Date: 20060218
  Serious: Yes (Other)
  Sender: FDA-Public Use
  Company Number: GBWYE931725AUG05

PATIENT
  Age: 74 Year
  Sex: Male

DRUGS (2)
  1. TRIHEXYPHENIDYL HCL [Suspect]
     Indication: TREMOR
     Dosage: 2 MG 3X PER 1 DAY ORAL
     Route: 048
     Dates: start: 20050805, end: 20050809
  2. SIMVASTATIN [Concomitant]

REACTIONS (4)
  - CONFUSIONAL STATE [None]
  - FALL [None]
  - HALLUCINATION, VISUAL [None]
  - SYNCOPE [None]
